FAERS Safety Report 14250289 (Version 2)
Quarter: 2018Q2

REPORT INFORMATION
  Report Type: Spontaneous
  Country: JP (occurrence: JP)
  Receive Date: 20171205
  Receipt Date: 20180402
  Transmission Date: 20180711
  Serious: Yes (Hospitalization, Other)
  Sender: FDA-Public Use
  Company Number: JP-ACCORD-061520

PATIENT
  Age: 76 Year

DRUGS (1)
  1. METHOTREXATE. [Suspect]
     Active Substance: METHOTREXATE
     Indication: RHEUMATOID ARTHRITIS

REACTIONS (4)
  - Epstein-Barr virus infection [Recovering/Resolving]
  - Cytomegalovirus colitis [Unknown]
  - Lymphoproliferative disorder [Unknown]
  - Cerebral haemorrhage [Recovering/Resolving]
